FAERS Safety Report 10544162 (Version 1)
Quarter: 2014Q4

REPORT INFORMATION
  Report Type: Spontaneous
  Country: CL (occurrence: None)
  Receive Date: 20141023
  Receipt Date: 20141023
  Transmission Date: 20150529
  Serious: Yes (Hospitalization)
  Sender: FDA-Public Use
  Company Number: FK201404335

PATIENT
  Age: 41 Year
  Sex: Female

DRUGS (10)
  1. TRAMADOLE (TRAMADOL HYDROCHLORIDE) [Concomitant]
  2. OXYTOCIN. [Concomitant]
     Active Substance: OXYTOCIN
  3. LIDOCAINE HYDROCHLORIDE AND DEXTROSE [Suspect]
     Active Substance: LIDOCAINE HYDROCHLORIDE\LIDOCAINE HYDROCHLORIDE ANHYDROUS
     Indication: EPIDURAL ANAESTHESIA
     Dosage: 50 UG, 1 IN 1 TOTAL, INTRADISCAL (INTRASPINAL)
     Route: 024
     Dates: start: 20141006, end: 20141006
  4. EPHEDRINE [Concomitant]
     Active Substance: EPHEDRINE
  5. FENTANYL (FENTANYL) (FENTANYL) [Suspect]
     Active Substance: FENTANYL
     Indication: EPIDURAL ANAESTHESIA
     Dosage: 55 MG, 1 IN 1 TOTAL
     Dates: start: 20141006, end: 20141006
  6. CEFAZOLINA (CEFAZOLIN SODIUM) [Concomitant]
  7. CHLORPHENAMINE [Concomitant]
     Active Substance: CHLORPHENIRAMINE MALEATE
  8. MISOTROL (MSIOPROSTOL) [Concomitant]
  9. METAMIZOLE (METAMIZOLE) [Concomitant]
     Active Substance: METAMIZOLE
  10. DROPERIDOL. [Concomitant]
     Active Substance: DROPERIDOL

REACTIONS (3)
  - Communication disorder [None]
  - Headache [None]
  - Nerve stimulation test abnormal [None]

NARRATIVE: CASE EVENT DATE: 20141007
